FAERS Safety Report 15426992 (Version 1)
Quarter: 2018Q3

REPORT INFORMATION
  Report Type: Spontaneous
  Country: US (occurrence: US)
  Receive Date: 20180925
  Receipt Date: 20180925
  Transmission Date: 20181010
  Serious: No
  Sender: FDA-Public Use
  Company Number: US-INDIVIOR LIMITED-INDV-108978-2018

PATIENT
  Sex: Male

DRUGS (2)
  1. SUBOXONE [Suspect]
     Active Substance: BUPRENORPHINE HYDROCHLORIDE\NALOXONE HYDROCHLORIDE
     Dosage: 0.5MG, UNK
     Route: 060
  2. SUBOXONE [Suspect]
     Active Substance: BUPRENORPHINE HYDROCHLORIDE\NALOXONE HYDROCHLORIDE
     Indication: DRUG DEPENDENCE
     Dosage: 1.5 FILMS A DAY
     Route: 060
     Dates: start: 2015

REACTIONS (5)
  - Feeling abnormal [Unknown]
  - Wrong technique in product usage process [Unknown]
  - Drug withdrawal syndrome [Not Recovered/Not Resolved]
  - Euphoric mood [Unknown]
  - Balance disorder [Unknown]
